FAERS Safety Report 5223351-X (Version None)
Quarter: 2007Q1

REPORT INFORMATION
  Report Type: 
  Country: None (occurrence: None)
  Receive Date: 20070124
  Receipt Date: 20070110
  Transmission Date: 20070707
  Serious: Yes (Hospitalization)
  Sender: FDA-Public Use
  Company Number: 234868

PATIENT
  Age: 70 Year
  Sex: Female

DRUGS (3)
  1. MABTHERA (RITUXIMAB) CONC FOR SOLUTION FOR INFUSION [Suspect]
     Indication: LYMPHOMA
     Dosage: INTRAVENOUS
     Route: 042
     Dates: start: 20061109, end: 20061109
  2. CYCLOPHOSPHAMIDE [Suspect]
     Indication: LYMPHOMA
     Dosage: 1000 MG, INTRAVENOUS
     Route: 042
     Dates: start: 20061109, end: 20061109
  3. FLUDARA [Suspect]
     Indication: LYMPHOMA
     Dosage: 60 MG, INTRAVNEOUS
     Route: 042
     Dates: start: 20061109, end: 20061109

REACTIONS (2)
  - CHEST DISCOMFORT [None]
  - PULMONARY OEDEMA [None]
